FAERS Safety Report 10682787 (Version 1)
Quarter: 2014Q4

REPORT INFORMATION
  Report Type: Spontaneous
  Country: US (occurrence: None)
  Receive Date: 20141217
  Receipt Date: 20141217
  Transmission Date: 20150529
  Serious: Yes (Hospitalization)
  Sender: FDA-Public Use
  Company Number: TAP2009Q00357

PATIENT
  Age: 60 Year
  Sex: Male

DRUGS (1)
  1. KAPIDEX [Suspect]
     Active Substance: DEXLANSOPRAZOLE
     Indication: GASTROINTESTINAL DISORDER
     Dosage: 60 MG, 1 IN 1 D, PER ORAL
     Route: 048

REACTIONS (1)
  - Rash [None]
